FAERS Safety Report 8014932-9 (Version None)
Quarter: 2011Q4

REPORT INFORMATION
  Report Type: 
  Country: None (occurrence: None)
  Receive Date: 20111229
  Receipt Date: 20111220
  Transmission Date: 20120403
  Serious: Yes (Life-Threatening, Hospitalization)
  Sender: FDA-Public Use
  Company Number: US-ROCHE-709491

PATIENT
  Sex: Female
  Weight: 58 kg

DRUGS (35)
  1. PRILOSEC [Concomitant]
     Dosage: INDICATION: GI
     Route: 048
     Dates: start: 20081101, end: 20100609
  2. COD LIVER OIL [Concomitant]
     Indication: MEDICAL DIET
     Route: 048
  3. ACTEMRA [Suspect]
     Route: 042
  4. BLINDED METHOTREXATE [Suspect]
     Dosage: LAST DATE PRIOR TO SAE:16 JAN 2011
     Route: 048
  5. ACETAMINOPHEN [Concomitant]
     Indication: RHEUMATOID ARTHRITIS
     Dosage: DRUG NAME: ACETAMINOPHEN W/CODEINE, TDD: 2 TABLETS  PRN
     Route: 048
  6. METHYLPHENIDATE [Concomitant]
     Indication: FATIGUE
     Route: 048
  7. LISINOPRIL [Concomitant]
     Indication: HYPERTENSION
     Route: 048
  8. PLAQUENIL [Concomitant]
     Indication: RHEUMATOID ARTHRITIS
     Route: 048
  9. NITROGLYCERIN [Concomitant]
     Indication: CHEST PAIN
     Dosage: ROUTE: SUBLING
     Route: 050
  10. ACETAMINOPHEN [Concomitant]
     Indication: PAIN
     Route: 048
  11. ARISTOSPAN [Concomitant]
     Indication: BURSITIS
     Dosage: 1CC/2CC, FRQ:SD, ARISTOSPAN/SENSORCAINE
     Route: 058
     Dates: start: 20101109, end: 20101109
  12. PREDNISONE TAB [Concomitant]
     Route: 048
  13. KENALOG [Concomitant]
     Dosage: ROUTE: IA, LEFT WRIST DIFFUSION
     Route: 014
     Dates: start: 20091215, end: 20091215
  14. PREDNISONE TAB [Concomitant]
     Indication: RHEUMATOID ARTHRITIS
     Route: 048
  15. ATENOLOL [Concomitant]
     Indication: HYPERTENSION
     Route: 048
     Dates: start: 20070101, end: 20100501
  16. METOPROLOL SUCCINATE [Concomitant]
     Indication: HYPERTENSION
     Route: 048
  17. ACTEMRA [Suspect]
     Route: 042
  18. FLUOXETINE [Concomitant]
     Indication: DEPRESSION
     Route: 048
  19. ZINC [Concomitant]
     Indication: MEDICAL DIET
     Route: 048
  20. FOLIC ACID [Concomitant]
     Indication: MEDICAL DIET
     Route: 048
  21. ATENOLOL [Concomitant]
     Route: 048
  22. PLAVIX [Concomitant]
     Indication: THROMBOSIS PROPHYLAXIS
     Route: 048
  23. ACTEMRA [Suspect]
     Dosage: THERAPY TEMPORARILY INTERRUPTED
     Route: 042
     Dates: start: 20100517, end: 20100609
  24. SIMVASTATIN [Concomitant]
     Indication: HYPERLIPIDAEMIA
     Route: 048
  25. VITAMIN C [Concomitant]
     Indication: MEDICAL DIET
     Route: 048
  26. ACTEMRA [Suspect]
     Indication: RHEUMATOID ARTHRITIS
     Route: 042
  27. ACTEMRA [Suspect]
     Route: 042
  28. BLINDED METHOTREXATE [Suspect]
     Indication: RHEUMATOID ARTHRITIS
     Route: 048
     Dates: start: 19990101, end: 20100420
  29. ASPIRIN [Concomitant]
     Dosage: INDICATION:CAD PREVENTION
     Route: 048
  30. VITAMIN A [Concomitant]
     Indication: MEDICAL DIET
     Route: 048
  31. SENSORCAINE [Concomitant]
     Dosage: 1 CC/2CC FREQ: SD,BURSILLS LEFT SHOULDER
     Route: 058
     Dates: start: 20101109, end: 20101109
  32. ACTEMRA [Suspect]
     Dosage: LAST DOSE PRIOR TO SAE:11 JAN 2011, DOSAGE FORM: INFUSION
     Route: 042
  33. PEPCID [Concomitant]
     Indication: GASTROOESOPHAGEAL REFLUX DISEASE
     Route: 048
  34. METOPROLOL SUCCINATE [Concomitant]
     Route: 048
  35. PLAQUENIL [Concomitant]
     Route: 048

REACTIONS (3)
  - MYOCARDIAL INFARCTION [None]
  - ANXIETY [None]
  - CHEST PAIN [None]
